FAERS Safety Report 7348002-X (Version None)
Quarter: 2011Q1

REPORT INFORMATION
  Report Type: 
  Country: None (occurrence: None)
  Receive Date: 20110311
  Receipt Date: 20110307
  Transmission Date: 20110831
  Serious: Yes (Death, Hospitalization, Other)
  Sender: FDA-Public Use
  Company Number: PHEH2008US08700

PATIENT
  Sex: Female
  Weight: 60.771 kg

DRUGS (25)
  1. AVASTIN [Concomitant]
     Dosage: UNK
     Dates: start: 20070322
  2. PERCOCET [Concomitant]
     Dosage: UNK
     Route: 048
  3. DRUG THERAPY NOS [Concomitant]
     Dosage: UNK
     Dates: start: 20031201
  4. LIPITOR [Concomitant]
     Dosage: 10 MG, QD
     Route: 048
  5. VASOTEC [Concomitant]
     Dosage: 5 MG, Q12H
  6. DURAGESIC-50 [Concomitant]
     Dosage: 25 MCG, PRN
     Route: 062
  7. ZOMETA [Suspect]
     Dosage: UNK
     Dates: start: 20020401, end: 20060301
  8. XYLOCAINE [Concomitant]
     Dosage: 1 %, UNK
     Dates: start: 20000912
  9. AMOXICILLIN [Concomitant]
     Dosage: 500 MG, QD
     Route: 048
  10. AREDIA [Suspect]
     Dosage: UNK
     Dates: start: 20001201, end: 20020201
  11. RELAFEN [Concomitant]
     Dosage: UNK
  12. ATENOLOL [Concomitant]
     Dosage: 100 MG, QD
     Route: 048
  13. NEUPOGEN [Concomitant]
  14. FOSAMAX [Concomitant]
  15. FASLODEX [Concomitant]
  16. OXYCONTIN [Concomitant]
     Dosage: UNK MG, PRN
     Route: 048
  17. ENALAPRIL MALEATE [Concomitant]
     Dosage: UNK
     Route: 048
  18. METRONIDAZOLE [Concomitant]
  19. PROTONIX [Concomitant]
  20. FEMARA [Concomitant]
     Dosage: UNK
     Dates: start: 20031201
  21. FLAGYL [Concomitant]
  22. CELESTONE [Concomitant]
     Dosage: 2 ML, UNK
     Dates: start: 20000912
  23. TAMOXIFEN [Concomitant]
  24. XELODA [Concomitant]
     Dosage: UNK
     Dates: start: 20070322
  25. LACTULOSE [Concomitant]

REACTIONS (67)
  - SPINAL OSTEOARTHRITIS [None]
  - OSTEONECROSIS OF JAW [None]
  - ANXIETY [None]
  - ORAL CAVITY FISTULA [None]
  - ANHEDONIA [None]
  - RECTAL HAEMORRHAGE [None]
  - OPEN WOUND [None]
  - PERIODONTAL DISEASE [None]
  - ABSCESS [None]
  - EPILEPSY [None]
  - COMPRESSION FRACTURE [None]
  - ORAL INFECTION [None]
  - GINGIVAL EROSION [None]
  - LEUKOPENIA [None]
  - BONE DISORDER [None]
  - SALIVARY GLAND MASS [None]
  - GLOSSODYNIA [None]
  - ACUTE RESPIRATORY DISTRESS SYNDROME [None]
  - RADICULOPATHY [None]
  - HYPOAESTHESIA [None]
  - COLONIC POLYP [None]
  - PAIN [None]
  - NEOPLASM MALIGNANT [None]
  - DIARRHOEA [None]
  - PLEURAL EFFUSION [None]
  - ACTINOMYCOSIS [None]
  - INTERVERTEBRAL DISC PROTRUSION [None]
  - PAIN IN JAW [None]
  - BACK PAIN [None]
  - DECREASED APPETITE [None]
  - COLITIS ISCHAEMIC [None]
  - OEDEMA [None]
  - ORAL DISORDER [None]
  - OSTEOARTHRITIS [None]
  - PURULENT DISCHARGE [None]
  - WEIGHT DECREASED [None]
  - HAEMORRHOIDS [None]
  - FOOT FRACTURE [None]
  - INTERVERTEBRAL DISC COMPRESSION [None]
  - MENISCUS LESION [None]
  - JOINT EFFUSION [None]
  - CELLULITIS [None]
  - ARTHRALGIA [None]
  - CARDIOMEGALY [None]
  - RESPIRATORY DISTRESS [None]
  - CONSTIPATION [None]
  - NEUROPATHY PERIPHERAL [None]
  - INFECTION [None]
  - GINGIVAL BLEEDING [None]
  - RHEUMATOID ARTHRITIS [None]
  - DEATH [None]
  - SPINAL COLUMN STENOSIS [None]
  - FALL [None]
  - OSTEOMYELITIS ACUTE [None]
  - GENERAL PHYSICAL HEALTH DETERIORATION [None]
  - IRRITABLE BOWEL SYNDROME [None]
  - LUNG INFILTRATION [None]
  - FISTULA [None]
  - OROPHARYNGEAL BLISTERING [None]
  - BACK DISORDER [None]
  - PAIN IN EXTREMITY [None]
  - MOBILITY DECREASED [None]
  - METASTASES TO BONE [None]
  - METASTASES TO SPINE [None]
  - ECCHYMOSIS [None]
  - ORAL PAIN [None]
  - GINGIVAL SWELLING [None]
